FAERS Safety Report 7327832-4 (Version None)
Quarter: 2011Q1

REPORT INFORMATION
  Report Type: 
  Country: None (occurrence: None)
  Receive Date: 20110217
  Receipt Date: 20110209
  Transmission Date: 20110831
  Serious: Yes (Other)
  Sender: FDA-Public Use
  Company Number: DSA_44947_2011

PATIENT
  Sex: Female

DRUGS (7)
  1. NECON [Concomitant]
  2. VALPROATE SODIUM [Concomitant]
  3. ALPRAZOLAM [Concomitant]
  4. BUPROPION HYDROCHLORIDE [Suspect]
     Indication: DEPRESSION
     Dosage: 300 MG DAILY, ORAL
     Route: 048
     Dates: start: 20100101, end: 20101201
  5. LAMOTRIGINE [Suspect]
     Indication: BIPOLAR DISORDER
     Dosage: 75 MG DAILY, ORAL
     Route: 048
     Dates: start: 20110204, end: 20110205
  6. LAMOTRIGINE [Suspect]
     Indication: CONVULSION
     Dosage: 75 MG DAILY, ORAL
     Route: 048
     Dates: start: 20110204, end: 20110205
  7. PAXIL CR [Concomitant]

REACTIONS (4)
  - RASH [None]
  - PRODUCT SUBSTITUTION ISSUE [None]
  - CONVULSION [None]
  - CONTUSION [None]
